FAERS Safety Report 4354251-5 (Version None)
Quarter: 2004Q2

REPORT INFORMATION
  Report Type: 
  Country: None (occurrence: None)
  Receive Date: 20040506
  Receipt Date: 20040301
  Transmission Date: 20050107
  Serious: Yes (Hospitalization)
  Sender: FDA-Public Use
  Company Number: DE-ROCHE-360169

PATIENT
  Age: 27 Year
  Sex: Male

DRUGS (4)
  1. PEG-INTERFERON ALFA 2A (RO 25-8310) [Suspect]
     Indication: HEPATITIS C
     Route: 058
     Dates: start: 20031113
  2. RIBAVIRIN [Suspect]
     Indication: HEPATITIS C
     Route: 048
     Dates: start: 20031113
  3. AMANTADINE HCL [Suspect]
     Indication: HEPATITIS C
     Route: 048
     Dates: start: 20031030
  4. LINOLA-FETT [Suspect]
     Indication: NEURODERMATITIS
     Dosage: TRADE NAME: LINOLA FETT SALLE. TAKEN WHEN NECESSARY.
     Route: 065
     Dates: start: 20031106

REACTIONS (6)
  - ECZEMA [None]
  - ECZEMA INFECTED [None]
  - ERYTHEMA MULTIFORME [None]
  - INFECTION [None]
  - ORAL MUCOSAL BLISTERING [None]
  - SECRETION DISCHARGE [None]
